FAERS Safety Report 20855378 (Version 7)
Quarter: 2023Q1

REPORT INFORMATION
  Report Type: Spontaneous
  Country: US (occurrence: US)
  Receive Date: 20220520
  Receipt Date: 20230317
  Transmission Date: 20230417
  Serious: Yes (Hospitalization)
  Sender: FDA-Public Use
  Company Number: US-PFIZER INC-2021576760

PATIENT
  Age: 74 Year
  Sex: Female
  Weight: 68.03 kg

DRUGS (10)
  1. IBRANCE [Suspect]
     Active Substance: PALBOCICLIB
     Indication: Breast cancer female
     Dosage: 125 MG, 1X/DAY
     Route: 048
     Dates: start: 20201102
  2. TEXAKIND [Concomitant]
     Indication: Generalised tonic-clonic seizure
     Dosage: 500 MG, 2X/DAY
     Dates: start: 1980
  3. FASLODEX [Concomitant]
     Active Substance: FULVESTRANT
     Indication: Blood oestrogen decreased
     Dosage: UNK (1XMONTH)
     Dates: start: 202011
  4. XGEVA [Concomitant]
     Active Substance: DENOSUMAB
     Indication: Bone disorder
     Dosage: 25 MG FOR 1 MONTH
     Dates: start: 202011
  5. LOSARTAN [Concomitant]
     Active Substance: LOSARTAN
     Indication: Hypertension
     Dosage: 50 MG, 1X/DAY
  6. HYDROCHLOROTHIAZIDE [Concomitant]
     Active Substance: HYDROCHLOROTHIAZIDE
     Dosage: 12.5 MG, 1X/DAY
  7. GABAPENTIN [Concomitant]
     Active Substance: GABAPENTIN
     Indication: Herpes zoster
     Dosage: 300 MG, 2X/DAY
     Dates: start: 2013
  8. LATANOPROST / TIMOLOL [Concomitant]
     Dosage: UNK
  9. PAROXETINE [Concomitant]
     Active Substance: PAROXETINE
     Indication: Anxiety
     Dosage: 30 MG, DAILY
     Dates: start: 2021
  10. VITAMIN D3 [Concomitant]
     Active Substance: CHOLECALCIFEROL
     Dosage: 1000 IU, 1X/DAY

REACTIONS (8)
  - Vomiting [Not Recovered/Not Resolved]
  - White blood cell count decreased [Not Recovered/Not Resolved]
  - Diarrhoea [Not Recovered/Not Resolved]
  - Fatigue [Not Recovered/Not Resolved]
  - Flatulence [Unknown]
  - Neoplasm progression [Recovering/Resolving]
  - Stress [Unknown]
  - Fall [Unknown]
